FAERS Safety Report 19939176 (Version 7)
Quarter: 2022Q4

REPORT INFORMATION
  Report Type: Report from Study
  Country: IL (occurrence: IL)
  Receive Date: 20211011
  Receipt Date: 20221228
  Transmission Date: 20230113
  Serious: Yes (Hospitalization)
  Sender: FDA-Public Use
  Company Number: IL-KARYOPHARM THERAPEUTICS, INC.-2021KPT001267

PATIENT
  Age: 65 Year
  Sex: Male
  Weight: 68.5 kg

DRUGS (19)
  1. SELINEXOR [Suspect]
     Active Substance: SELINEXOR
     Indication: Non-small cell lung cancer
     Dosage: 60 MG, WEEKLY
     Route: 048
     Dates: start: 20210502
  2. DOCETAXEL [Suspect]
     Active Substance: DOCETAXEL
     Indication: Non-small cell lung cancer
     Dosage: 75 MG/M2, 1X/3 WEEKS
     Route: 042
     Dates: start: 20210502, end: 20210525
  3. DOCETAXEL [Suspect]
     Active Substance: DOCETAXEL
     Dosage: 59.14 MG/M2, 1X/3 WEEKS
     Route: 042
     Dates: start: 20210525, end: 20210824
  4. DOCETAXEL [Suspect]
     Active Substance: DOCETAXEL
     Dosage: 55 MG/M2, 1X/3 WEEKS
     Route: 042
     Dates: start: 20210824, end: 20211005
  5. VITAMIN B12 [Concomitant]
     Active Substance: CYANOCOBALAMIN
     Indication: Prophylaxis
     Dosage: 1200 UG, QD
     Route: 048
     Dates: start: 2020
  6. TRAMADOL [Concomitant]
     Active Substance: TRAMADOL
     Indication: Pulmonary pain
     Dosage: 100 MG, PRN
     Route: 048
     Dates: start: 202001
  7. FOLIC ACID [Concomitant]
     Active Substance: FOLIC ACID
     Indication: Prophylaxis
     Dosage: 5 MG, QD
     Route: 048
     Dates: start: 2019
  8. NALOXONE HYDROCHLORIDE\OXYCODONE HYDROCHLORIDE [Concomitant]
     Active Substance: NALOXONE HYDROCHLORIDE\OXYCODONE HYDROCHLORIDE
     Indication: Pulmonary pain
     Dosage: 10 MG, PRN
     Route: 048
     Dates: start: 202104
  9. METAMIZOLE [Concomitant]
     Active Substance: METAMIZOLE
     Indication: Pulmonary pain
     Dosage: 500 MG, PRN
     Route: 048
     Dates: start: 202103
  10. LEVOTHYROXINE [Concomitant]
     Active Substance: LEVOTHYROXINE
     Indication: Hypothyroidism
     Dosage: 50 UG, QD
     Route: 048
     Dates: start: 202103
  11. AZELASTINE [Concomitant]
     Active Substance: AZELASTINE
     Indication: Lacrimation increased
     Dosage: 8 ML
     Route: 047
     Dates: start: 20210318
  12. ZYPREXA [Concomitant]
     Active Substance: OLANZAPINE
     Indication: Prophylaxis
     Dosage: 5 MG, QD PRN
     Route: 048
     Dates: start: 20210502
  13. ONDANSETRON [Concomitant]
     Active Substance: ONDANSETRON
     Indication: Prophylaxis
     Dosage: 8 MG, QD
     Route: 048
     Dates: start: 20210502
  14. VOLTAREN [Concomitant]
     Active Substance: DICLOFENAC SODIUM
     Indication: Back pain
     Dosage: 1 %, PRN
     Route: 061
     Dates: start: 20210515
  15. DEXAMETHASONE [Concomitant]
     Active Substance: DEXAMETHASONE
     Indication: Prophylaxis
     Dosage: 8 MG, PRN
     Route: 048
     Dates: start: 20210501
  16. FENTANYL TRANSDERMAL SYSTEM [Concomitant]
     Active Substance: FENTANYL
     Indication: Back pain
     Dosage: 1 PATCH, 2X/WEEK
     Route: 062
     Dates: start: 202108
  17. FAMOTIDINE [Concomitant]
     Active Substance: FAMOTIDINE
     Dosage: 40 MG, QD
     Route: 048
  18. OMEPRAZOLE [Concomitant]
     Active Substance: OMEPRAZOLE
     Dosage: 20 MG, QD
     Route: 048
  19. FEXOFENADINE [Concomitant]
     Active Substance: FEXOFENADINE HYDROCHLORIDE
     Dosage: 180 MG, QD
     Route: 048

REACTIONS (1)
  - Orthostatic hypotension [Recovered/Resolved]

NARRATIVE: CASE EVENT DATE: 20210930
